FAERS Safety Report 17302383 (Version 1)
Quarter: 2020Q1

REPORT INFORMATION
  Report Type: Spontaneous
  Country: AU (occurrence: AU)
  Receive Date: 20200122
  Receipt Date: 20200122
  Transmission Date: 20200409
  Serious: Yes (Hospitalization, Other)
  Sender: FDA-Public Use
  Company Number: AU-SAMSUNG BIOEPIS-SB-2020-01319

PATIENT
  Sex: Female

DRUGS (11)
  1. DIPROSONE [Suspect]
     Active Substance: BETAMETHASONE DIPROPIONATE
     Indication: PYODERMA GANGRENOSUM
     Dosage: UNKNOWN
     Route: 065
  2. POTASSIUM IODIDE. [Suspect]
     Active Substance: POTASSIUM IODIDE
     Indication: PRODUCT USED FOR UNKNOWN INDICATION
     Dosage: 900 MG DAILY
     Route: 065
  3. MINOCYCLINE [Suspect]
     Active Substance: MINOCYCLINE HYDROCHLORIDE
     Indication: PYODERMA GANGRENOSUM
     Route: 048
  4. INFLIXIMAB [Suspect]
     Active Substance: INFLIXIMAB
     Indication: PRODUCT USED FOR UNKNOWN INDICATION
     Dosage: UNKNOWN
     Route: 065
  5. DAPSONE. [Suspect]
     Active Substance: DAPSONE
     Indication: PYODERMA GANGRENOSUM
     Route: 048
  6. KENACORT [Suspect]
     Active Substance: TRIAMCINOLONE
     Indication: PYODERMA GANGRENOSUM
     Dosage: UNKNOWN
     Route: 026
  7. PREDNISOLONE. [Suspect]
     Active Substance: PREDNISOLONE
     Indication: PYODERMA GANGRENOSUM
     Route: 048
  8. PREDNISOLONE. [Suspect]
     Active Substance: PREDNISOLONE
     Route: 065
  9. PREDNISOLONE. [Suspect]
     Active Substance: PREDNISOLONE
     Dosage: UNKNOWN
     Route: 065
  10. MYCOPHENOLATE [Suspect]
     Active Substance: MYCOPHENOLIC ACID
     Indication: PRODUCT USED FOR UNKNOWN INDICATION
     Dosage: 1000 MG DAILY
     Route: 065
  11. TACROLIMUS. [Suspect]
     Active Substance: TACROLIMUS
     Indication: PYODERMA GANGRENOSUM
     Dosage: UNKNOWN
     Route: 061

REACTIONS (9)
  - Chronic kidney disease [Unknown]
  - Myopathy [Unknown]
  - Pulmonary embolism [Unknown]
  - Drug ineffective [Unknown]
  - Rectal haemorrhage [Unknown]
  - Urosepsis [Unknown]
  - Condition aggravated [Unknown]
  - Dyspnoea [Unknown]
  - Weight increased [Unknown]
